FAERS Safety Report 12475922 (Version 2)
Quarter: 2016Q2

REPORT INFORMATION
  Report Type: Spontaneous
  Country: FR (occurrence: FR)
  Receive Date: 20160617
  Receipt Date: 20160629
  Transmission Date: 20160815
  Serious: Yes (Hospitalization, Other)
  Sender: FDA-Public Use
  Company Number: FR-UCBSA-2016015660

PATIENT
  Age: 0 Year
  Sex: Male
  Weight: 2.7 kg

DRUGS (1)
  1. KEPPRA [Suspect]
     Active Substance: LEVETIRACETAM
     Indication: EPILEPSY
     Dosage: 500 MG, 2X/DAY (BID)
     Route: 064
     Dates: start: 2015, end: 20151130

REACTIONS (6)
  - Acidosis [Recovered/Resolved]
  - Hypothermia [Recovered/Resolved]
  - Foetal exposure during pregnancy [Unknown]
  - Growth retardation [Recovered/Resolved]
  - Hypoglycaemia [Recovered/Resolved]
  - Cardiac disorder [Recovered/Resolved]

NARRATIVE: CASE EVENT DATE: 2015
